FAERS Safety Report 7071021-8 (Version None)
Quarter: 2010Q4

REPORT INFORMATION
  Report Type: 
  Country: None (occurrence: None)
  Receive Date: 20101029
  Receipt Date: 20100713
  Transmission Date: 20110411
  Serious: Yes (Hospitalization, Other)
  Sender: FDA-Public Use
  Company Number: US-ASTRAZENECA-2010SE33539

PATIENT
  Age: 15692 Day
  Sex: Female
  Weight: 146.5 kg

DRUGS (12)
  1. SEROQUEL [Suspect]
     Indication: SLEEP DISORDER
     Dosage: 50 TO 100 MG DAILY
     Route: 048
     Dates: start: 20070716
  2. SEROQUEL [Suspect]
     Route: 048
     Dates: start: 20080605
  3. SEROQUEL [Suspect]
     Route: 048
     Dates: start: 20090120
  4. PREDNISONE [Concomitant]
     Indication: LUPUS NEPHRITIS
     Dates: start: 20091117
  5. ENALAPRIL HCT [Concomitant]
     Indication: HYPERTENSION
     Dates: start: 20090101
  6. ATENOLOL [Concomitant]
     Indication: BLOOD PRESSURE MANAGEMENT
     Dates: start: 20090101
  7. TRAMADOL HCL [Concomitant]
     Indication: PAIN
     Dates: start: 20090101
  8. LORCET-HD [Concomitant]
     Indication: PAIN
     Dates: start: 20090101
  9. FLUOXETINE [Concomitant]
     Dates: start: 20090120
  10. HALDOL [Concomitant]
     Dates: start: 20090120
  11. TRAZODONE [Concomitant]
     Dates: start: 20090120
  12. BENZTROPINE MESYLATE [Concomitant]
     Dates: start: 20090120

REACTIONS (8)
  - ANAEMIA [None]
  - ASTHMA [None]
  - CHRONIC OBSTRUCTIVE PULMONARY DISEASE [None]
  - DIABETES MELLITUS INADEQUATE CONTROL [None]
  - DIABETIC NEUROPATHY [None]
  - NICOTINE DEPENDENCE [None]
  - OBESITY [None]
  - SYSTEMIC LUPUS ERYTHEMATOSUS [None]
